FAERS Safety Report 5672846-3 (Version None)
Quarter: 2008Q1

REPORT INFORMATION
  Report Type: 
  Country: None (occurrence: None)
  Receive Date: 20080319
  Receipt Date: 20080229
  Transmission Date: 20080703
  Serious: Yes (Hospitalization, Congenital Anomaly)
  Sender: FDA-Public Use
  Company Number: A0678249A

PATIENT
  Sex: Male
  Weight: 3 kg

DRUGS (14)
  1. PAXIL [Suspect]
     Indication: ANXIETY
     Dosage: 20MG PER DAY
     Dates: start: 19990226, end: 20030901
  2. VITAMIN TAB [Concomitant]
     Dates: start: 20010401, end: 20020101
  3. ZOFRAN [Concomitant]
     Indication: NAUSEA
     Dates: start: 20010801
  4. BRETHINE [Concomitant]
     Indication: PREMATURE LABOUR
     Dates: start: 20010801, end: 20011101
  5. ROXICET [Concomitant]
     Indication: LABOUR PAIN
     Dates: start: 20011125
  6. IBUPROFEN [Concomitant]
     Indication: LABOUR PAIN
     Dates: start: 20011125
  7. ENALAPRIL MALEATE [Concomitant]
     Dates: start: 20020801, end: 20021001
  8. DIURIL [Concomitant]
     Dates: start: 20020801, end: 20030301
  9. REGLAN [Concomitant]
     Indication: ILL-DEFINED DISORDER
     Dates: start: 20011125, end: 20030101
  10. DIGOXIN [Concomitant]
     Dates: start: 20011125, end: 20030101
  11. FOLIC ACID [Concomitant]
     Indication: BLOOD DISORDER
     Dates: start: 20050101
  12. TERBUTALINE SULFATE [Concomitant]
  13. EPIDURAL [Concomitant]
  14. PITOCIN [Concomitant]

REACTIONS (17)
  - ANXIETY [None]
  - ATRIAL SEPTAL DEFECT [None]
  - BRAIN NEOPLASM [None]
  - CHYLOTHORAX [None]
  - CONGENITAL PULMONARY HYPERTENSION [None]
  - DRUG EXPOSURE DURING PREGNANCY [None]
  - GASTROOESOPHAGEAL REFLUX DISEASE [None]
  - PAIN [None]
  - PATENT DUCTUS ARTERIOSUS [None]
  - PERSISTENT FOETAL CIRCULATION [None]
  - PLEURAL EFFUSION [None]
  - PNEUMONIA [None]
  - PNEUMONIA KLEBSIELLA [None]
  - PNEUMONIA STAPHYLOCOCCAL [None]
  - RESPIRATORY DISTRESS [None]
  - RESPIRATORY SYNCYTIAL VIRUS INFECTION [None]
  - TRISOMY 21 [None]
